FAERS Safety Report 7249288-2 (Version None)
Quarter: 2011Q1

REPORT INFORMATION
  Report Type: 
  Country: None (occurrence: None)
  Receive Date: 20110128
  Receipt Date: 20101124
  Transmission Date: 20110831
  Serious: Yes (Death)
  Sender: FDA-Public Use
  Company Number: US-BAYER-201034343NA

PATIENT
  Sex: Female
  Weight: 115.65 kg

DRUGS (5)
  1. OCELLA [Suspect]
     Indication: PRODUCT USED FOR UNKNOWN INDICATION
     Dosage: UNK UNK, UNK
     Route: 048
     Dates: start: 20090801, end: 20100421
  2. ADVIL [Concomitant]
  3. CYCLOBENZAPRINE [Concomitant]
     Indication: MUSCLE SPASMS
     Dosage: 10 MG, QID
     Route: 048
     Dates: start: 20090601
  4. IBUPROFEN [Concomitant]
     Indication: PAIN
     Dosage: 800 MG, QID
     Route: 048
     Dates: start: 20090201
  5. METFORMIN [Concomitant]
     Dosage: 500 MG, BID
     Route: 048
     Dates: start: 20090201, end: 20100101

REACTIONS (2)
  - DEEP VEIN THROMBOSIS [None]
  - PULMONARY EMBOLISM [None]
